FAERS Safety Report 5823637-1 (Version None)
Quarter: 2008Q3

REPORT INFORMATION
  Report Type: 
  Country: None (occurrence: None)
  Receive Date: 20080725
  Receipt Date: 20080717
  Transmission Date: 20090109
  Serious: Yes (Other)
  Sender: FDA-Public Use
  Company Number: NL-PFIZER INC-2006019518

PATIENT
  Age: 46 Year
  Sex: Male

DRUGS (6)
  1. IRINOTECAN HCL [Suspect]
     Indication: COLON CANCER
     Route: 042
  2. GRANISETRON HCL [Concomitant]
     Indication: PREMEDICATION
  3. DEXAMETHASONE [Concomitant]
     Indication: PREMEDICATION
  4. ATROPINE [Concomitant]
     Indication: PREMEDICATION
  5. IBUPROFEN [Concomitant]
     Dosage: FREQ:SPORADICALLY
  6. ACETAMINOPHEN [Concomitant]
     Dosage: FREQ:SPORADICALLY

REACTIONS (2)
  - ATAXIA [None]
  - DYSARTHRIA [None]
